FAERS Safety Report 18952862 (Version 1)
Quarter: 2021Q1

REPORT INFORMATION
  Report Type: Report from Study
  Country: BR (occurrence: BR)
  Receive Date: 20210301
  Receipt Date: 20210301
  Transmission Date: 20210420
  Serious: Yes (Other)
  Sender: FDA-Public Use
  Company Number: NVSC2021BR041513

PATIENT
  Age: 59 Year
  Sex: Female
  Weight: 84 kg

DRUGS (1)
  1. LETROZOLE. [Suspect]
     Active Substance: LETROZOLE
     Indication: PRODUCT USED FOR UNKNOWN INDICATION
     Dosage: UNK
     Route: 065
     Dates: start: 2016, end: 201910

REACTIONS (23)
  - Fatigue [Recovered/Resolved]
  - Neutrophil count decreased [Unknown]
  - Monocyte count decreased [Unknown]
  - Hypermetabolism [Unknown]
  - Carbohydrate antigen 15-3 increased [Not Recovered/Not Resolved]
  - Metastases to bone [Unknown]
  - Mucosal inflammation [Recovered/Resolved]
  - Blood lactate dehydrogenase increased [Unknown]
  - Alanine aminotransferase increased [Unknown]
  - Hyperhidrosis [Recovering/Resolving]
  - Bone pain [Recovered/Resolved]
  - Mean cell haemoglobin concentration increased [Unknown]
  - Aspartate aminotransferase increased [Unknown]
  - Blood bilirubin decreased [Unknown]
  - Red blood cell count decreased [Unknown]
  - White blood cell count decreased [Unknown]
  - Carcinoembryonic antigen increased [Unknown]
  - Disease progression [Not Recovered/Not Resolved]
  - Blood bilirubin unconjugated decreased [Unknown]
  - Mean cell volume increased [Unknown]
  - Platelet count decreased [Unknown]
  - Bone disorder [Unknown]
  - Synovial cyst [Unknown]

NARRATIVE: CASE EVENT DATE: 201910
